FAERS Safety Report 6232033-7 (Version None)
Quarter: 2009Q2

REPORT INFORMATION
  Report Type: 
  Country: None (occurrence: None)
  Receive Date: 20090616
  Receipt Date: 20090601
  Transmission Date: 20091009
  Serious: Yes (Death)
  Sender: FDA-Public Use
  Company Number: US-GENENTECH-284656

PATIENT
  Age: 47 Year
  Sex: Female

DRUGS (8)
  1. RITUXAN [Suspect]
     Indication: ADENOCARCINOMA PANCREAS
     Dosage: UNK MG/M2, UNK
     Route: 065
  2. AVASTIN [Suspect]
     Indication: ADENOCARCINOMA PANCREAS
     Dosage: 15 MG/M2, UNK
     Route: 042
     Dates: start: 20060901, end: 20070601
  3. CAPECITABINE [Suspect]
     Indication: ADENOCARCINOMA PANCREAS
     Dosage: 825 MG, BID
     Route: 048
     Dates: start: 20060901, end: 20070601
  4. GEMCITABINE [Suspect]
     Indication: ADENOCARCINOMA PANCREAS
     Dosage: 1000 MG/M2, UNK
     Route: 065
     Dates: start: 20060901, end: 20070601
  5. DEXAMETHASONE [Suspect]
     Indication: DRUG USE FOR UNKNOWN INDICATION
     Dosage: 4 MG, BID
     Route: 048
  6. VINCRISTINE [Suspect]
     Indication: ADENOCARCINOMA PANCREAS
     Dosage: 2 MG, 1/WEEK
     Route: 042
  7. FUROSEMIDE [Concomitant]
     Indication: DRUG USE FOR UNKNOWN INDICATION
  8. METHYLPREDNISOLONE [Concomitant]
     Indication: DRUG USE FOR UNKNOWN INDICATION

REACTIONS (6)
  - CARDIAC FAILURE CONGESTIVE [None]
  - DEATH [None]
  - GRAND MAL CONVULSION [None]
  - HAEMOLYTIC URAEMIC SYNDROME [None]
  - HYPERTENSION [None]
  - NEPHROTIC SYNDROME [None]
